FAERS Safety Report 5528163-5 (Version None)
Quarter: 2007Q4

REPORT INFORMATION
  Report Type: 
  Country: None (occurrence: None)
  Receive Date: 20071128
  Receipt Date: 20071115
  Transmission Date: 20080405
  Serious: Yes (Hospitalization)
  Sender: FDA-Public Use
  Company Number: FR-ASTRAZENECA-2007CG01514

PATIENT
  Age: 46 Year
  Sex: Female

DRUGS (2)
  1. ZOMIG [Suspect]
     Indication: HEADACHE
     Route: 048
  2. LAROXYL [Suspect]
     Indication: HEADACHE
     Route: 048

REACTIONS (2)
  - DRUG DEPENDENCE [None]
  - HEADACHE [None]
